FAERS Safety Report 23912661 (Version 1)
Quarter: 2024Q2

REPORT INFORMATION
  Report Type: Other
  Country: US (occurrence: US)
  Receive Date: 20240529
  Receipt Date: 20240529
  Transmission Date: 20240715
  Serious: Yes (Hospitalization)
  Sender: FDA-Public Use
  Company Number: US-OrBion Pharmaceuticals Private Limited-2157510

PATIENT
  Age: 52 Year
  Sex: Female

DRUGS (1)
  1. VENLAFAXINE HYDROCHLORIDE [Suspect]
     Active Substance: VENLAFAXINE HYDROCHLORIDE
     Indication: Intentional overdose
     Route: 048

REACTIONS (9)
  - Serotonin syndrome [Recovered/Resolved]
  - Intentional overdose [Unknown]
  - Cognitive disorder [Recovered/Resolved]
  - Toxicity to various agents [Unknown]
  - Electrocardiogram QT prolonged [Recovered/Resolved]
  - Respiratory acidosis [Recovered/Resolved]
  - Metabolic acidosis [Recovered/Resolved]
  - Acute respiratory distress syndrome [Recovered/Resolved]
  - Seizure [Recovered/Resolved]
